FAERS Safety Report 9774803 (Version 3)
Quarter: 2014Q1

REPORT INFORMATION
  Report Type: Report from Study
  Country: NO (occurrence: NO)
  Receive Date: 20131220
  Receipt Date: 20140117
  Transmission Date: 20141002
  Serious: Yes (Hospitalization)
  Sender: FDA-Public Use
  Company Number: NO-MPIJNJ-2013JNJ001137

PATIENT
  Sex: 0

DRUGS (10)
  1. VELCADE [Suspect]
     Indication: PLASMA CELL MYELOMA
     Dosage: 2.5 MG, UNK
     Route: 058
     Dates: start: 20130902, end: 20131118
  2. CYCLOPHOSPHAMIDE [Suspect]
     Indication: PLASMA CELL MYELOMA
     Dosage: 1000 MG, UNK
     Route: 042
     Dates: start: 20130902, end: 20131125
  3. DEXAMETHASONE [Suspect]
     Indication: PLASMA CELL MYELOMA
     Dosage: 40 MG, UNK
     Route: 048
     Dates: start: 20130902, end: 20131119
  4. GABAPENTIN [Concomitant]
     Dosage: 300 MG, UNK
     Route: 048
  5. TARGIN [Concomitant]
     Dosage: 40 MG, UNK
     Route: 048
  6. OXYCODONE [Concomitant]
     Dosage: UNK
     Route: 048
  7. LACTULOSE [Concomitant]
     Dosage: 10 ML, UNK
     Route: 048
  8. PARACETAMOL [Concomitant]
     Dosage: 1 G, UNK
     Route: 048
  9. FENTANYL [Concomitant]
     Dosage: UNK
     Route: 045
  10. VALACICLOVIR [Concomitant]
     Dosage: 500 MG, UNK
     Route: 048

REACTIONS (1)
  - Chest pain [Recovered/Resolved]
